FAERS Safety Report 5934986-0 (Version None)
Quarter: 2008Q4

REPORT INFORMATION
  Report Type: 
  Country: None (occurrence: None)
  Receive Date: 20081029
  Receipt Date: 20081029
  Transmission Date: 20090506
  Serious: No
  Sender: FDA-Public Use
  Company Number: None

PATIENT
  Sex: Male
  Weight: 2.4 kg

DRUGS (3)
  1. CAFCIT [Suspect]
     Indication: APNOEA
     Dosage: 45 MG ONCE IV 11 MG DAILY IV
     Route: 042
     Dates: start: 20081024
  2. CAFCIT [Suspect]
     Indication: APNOEA
     Dosage: 45 MG ONCE IV 11 MG DAILY IV
     Route: 042
     Dates: start: 20081025
  3. CAFCIT [Suspect]
     Indication: APNOEA
     Dosage: 45 MG ONCE IV 11 MG DAILY IV
     Route: 042
     Dates: start: 20081026

REACTIONS (1)
  - MEDICATION ERROR [None]
